FAERS Safety Report 9055238 (Version 1)
Quarter: 2013Q1

REPORT INFORMATION
  Report Type: Report from Study
  Country: JP (occurrence: JP)
  Receive Date: 20130206
  Receipt Date: 20130206
  Transmission Date: 20140127
  Serious: Yes (Other)
  Sender: FDA-Public Use
  Company Number: JP-VERTEX PHARMACEUTICALS INC.-AE-2012-004977

PATIENT
  Age: 65 Year
  Sex: Female

DRUGS (13)
  1. VX-950 (TELAPREVIR) [Suspect]
     Indication: CHRONIC HEPATITIS C
     Dosage: 1500 MG, QD
     Route: 048
     Dates: start: 20120131, end: 20120424
  2. REBETOL [Suspect]
     Indication: CHRONIC HEPATITIS C
     Dosage: 600 MG, QD
     Route: 048
     Dates: start: 20120131, end: 20120208
  3. REBETOL [Suspect]
     Dosage: 400 MG, QD
     Route: 048
     Dates: start: 20120209, end: 20120214
  4. REBETOL [Suspect]
     Dosage: 200 MG, QD
     Route: 048
     Dates: start: 20120215, end: 20120711
  5. PEGINTRON [Suspect]
     Indication: CHRONIC HEPATITIS C
     Dosage: 1.5 ?G/KG, QW
     Route: 058
     Dates: start: 20120131, end: 20120207
  6. PEGINTRON [Suspect]
     Dosage: 1 ?G/KG, QW
     Route: 058
     Dates: start: 20120215, end: 20120711
  7. NORVASC [Concomitant]
     Dosage: 2.5 MG, QD
     Route: 048
  8. DEPAS [Concomitant]
     Dosage: 1 MG, QD
     Route: 048
  9. FEROTYM [Concomitant]
     Dosage: 100 MG, QD
     Route: 048
  10. LIVALO [Concomitant]
     Dosage: 2 MG, QD
     Route: 048
  11. EPADEL-S [Concomitant]
     Dosage: 1800 MG, QD
     Route: 048
  12. CLARITIN REDITABS [Concomitant]
     Dosage: 10 MG, QD
     Route: 048
  13. ETIZOLAM [Concomitant]
     Dosage: 1 MG, QD
     Route: 048

REACTIONS (9)
  - Renal disorder [Not Recovered/Not Resolved]
  - Renal disorder [Unknown]
  - Renal disorder [Not Recovered/Not Resolved]
  - Anaemia [Not Recovered/Not Resolved]
  - Anaemia [Not Recovered/Not Resolved]
  - Anaemia [Not Recovered/Not Resolved]
  - Hyperuricaemia [Recovered/Resolved]
  - Platelet count decreased [Not Recovered/Not Resolved]
  - Platelet count decreased [Not Recovered/Not Resolved]
